FAERS Safety Report 7070074-0 (Version None)
Quarter: 2010Q4

REPORT INFORMATION
  Report Type: 
  Country: None (occurrence: None)
  Receive Date: 20101028
  Receipt Date: 20100930
  Transmission Date: 20110411
  Serious: No
  Sender: FDA-Public Use
  Company Number: US-WYE-H16929910

PATIENT
  Sex: Female

DRUGS (2)
  1. ADVIL [Suspect]
     Indication: PAIN
     Dosage: TWO CAPLETS ONE TIME
     Route: 048
     Dates: start: 20100811, end: 20100811
  2. ZYPREXA [Concomitant]

REACTIONS (1)
  - DRUG EFFECT DECREASED [None]
